FAERS Safety Report 16324933 (Version 1)
Quarter: 2019Q2

REPORT INFORMATION
  Report Type: Spontaneous
  Country: US (occurrence: US)
  Receive Date: 20190411
  Receipt Date: 20190411
  Transmission Date: 20190711
  Serious: Yes (Hospitalization)
  Sender: FDA-Public Use
  Company Number: None

PATIENT
  Age: 33 Year
  Sex: Female
  Weight: 67.6 kg

DRUGS (8)
  1. DEXAMETHASONE. [Suspect]
     Active Substance: DEXAMETHASONE
     Dates: end: 20190306
  2. CYCLOPHOSPHAMIDE. [Suspect]
     Active Substance: CYCLOPHOSPHAMIDE
     Dates: end: 20190318
  3. DAUNORUBICIN [Suspect]
     Active Substance: DAUNORUBICIN
     Dates: end: 20190307
  4. VINCRISTINE SULFATE. [Suspect]
     Active Substance: VINCRISTINE SULFATE
     Dates: end: 20190401
  5. CYTARABINE. [Suspect]
     Active Substance: CYTARABINE
     Dates: end: 20190328
  6. MERCAPTOPURINE. [Suspect]
     Active Substance: MERCAPTOPURINE
     Dates: end: 20190331
  7. METHOTREXATE. [Suspect]
     Active Substance: METHOTREXATE
     Dates: end: 20190401
  8. ONCASPAR [Suspect]
     Active Substance: PEGASPARGASE
     Dates: end: 20190401

REACTIONS (5)
  - Haemoglobin decreased [None]
  - Abdominal pain [None]
  - Vomiting [None]
  - Platelet count abnormal [None]
  - Colitis [None]

NARRATIVE: CASE EVENT DATE: 20190405
